FAERS Safety Report 8774616 (Version 4)
Quarter: 2013Q2

REPORT INFORMATION
  Report Type: Report from Study
  Country: JP (occurrence: JP)
  Receive Date: 20120907
  Receipt Date: 20130418
  Transmission Date: 20140414
  Serious: Yes (Other)
  Sender: FDA-Public Use
  Company Number: JP-009507513-1209JPN000324

PATIENT
  Age: 61 Year
  Sex: Male
  Weight: 59 kg

DRUGS (24)
  1. PEGINTRON [Suspect]
     Indication: CHRONIC HEPATITIS C
     Dosage: 1.38 MICROGRAM PER KILOGRAM, QW
     Route: 058
     Dates: start: 20120703, end: 20120717
  2. PEGINTRON [Suspect]
     Dosage: 1.02 MICROGRAM PER KILOGRAM, QW
     Route: 058
     Dates: start: 20120724, end: 20120724
  3. PEGINTRON [Suspect]
     Dosage: 1.2 MICROGRAM PER KILOGRAM, QW
     Route: 058
     Dates: start: 20120731, end: 20120731
  4. PEGINTRON [Suspect]
     Dosage: 1.38 MICROGRAM PER KILOGRAM, QW
     Route: 058
     Dates: start: 20120807, end: 20120821
  5. PEGINTRON [Suspect]
     Dosage: 1.03 MICROGRAM PER KILOGRAM, QW
     Route: 058
     Dates: start: 20120828, end: 20120904
  6. PEGINTRON [Suspect]
     Dosage: 1.2 MICROGRAM PER KILOGRAM, QW
     Route: 058
     Dates: start: 20120911, end: 20121204
  7. PEGINTRON [Suspect]
     Dosage: 1.09 MICROGRAM PER KILOGRAM, QW
     Route: 058
     Dates: start: 20121211, end: 20121211
  8. REBETOL [Suspect]
     Indication: CHRONIC HEPATITIS C
     Dosage: 600 MG, QD
     Route: 048
     Dates: start: 20120703, end: 20120724
  9. REBETOL [Suspect]
     Dosage: 400 MG, QD
     Route: 048
     Dates: start: 20120725, end: 20120731
  10. REBETOL [Suspect]
     Dosage: 200 MG, QD
     Route: 048
     Dates: start: 20120801
  11. REBETOL [Suspect]
     Dosage: 200 MG, 400 MG/ ON ALTERNATE DAYS
     Route: 048
     Dates: start: 20121017, end: 20121030
  12. REBETOL [Suspect]
     Dosage: 400 MG, QD
     Route: 048
     Dates: start: 20121031, end: 20121112
  13. REBETOL [Suspect]
     Dosage: 600 MG, QD
     Route: 048
     Dates: start: 20121113, end: 20121217
  14. TELAVIC [Suspect]
     Indication: CHRONIC HEPATITIS C
     Dosage: 2250 MG, QD
     Route: 048
     Dates: start: 20120703, end: 20120730
  15. TELAVIC [Suspect]
     Dosage: 1500 MG, QD
     Route: 048
     Dates: start: 20120731, end: 20120806
  16. TELAVIC [Suspect]
     Dosage: 1500 MG, QD
     Route: 048
     Dates: start: 20120807, end: 20120924
  17. OLMETEC [Concomitant]
     Indication: HYPERTENSION
     Dosage: 20 MG, QD
     Route: 048
     Dates: start: 20120705
  18. AMLODIN OD [Concomitant]
     Indication: HYPERTENSION
     Dosage: 2.5 MG, QD
     Route: 048
     Dates: start: 20120712
  19. MAGLAX (MAGNESIUM SULFATE) [Concomitant]
     Indication: CONSTIPATION
     Dosage: 1 DF, QD
     Route: 048
     Dates: start: 20120802
  20. GASTROM [Concomitant]
     Indication: PROPHYLAXIS
     Dosage: 3 G, QD
     Route: 048
     Dates: start: 20120807
  21. ROZEREM [Concomitant]
     Indication: PROPHYLAXIS
     Dosage: 8 MG/DAY, PRN
     Route: 048
     Dates: start: 20120703
  22. MUCOSTA [Concomitant]
     Indication: PROPHYLAXIS AGAINST GASTROINTESTINAL ULCER
     Dosage: 100 MG/DAY, PRN
     Route: 048
     Dates: start: 20120703
  23. LOXONIN [Concomitant]
     Indication: PROPHYLAXIS
     Dosage: 60 MG/ DAY, PRN
     Route: 048
     Dates: start: 20120703
  24. FEBURIC [Concomitant]
     Dosage: 20 MG, QD
     Route: 048

REACTIONS (1)
  - Rash [Recovering/Resolving]
